FAERS Safety Report 17541879 (Version 1)
Quarter: 2020Q1

REPORT INFORMATION
  Report Type: Other
  Country: AU (occurrence: AU)
  Receive Date: 20200313
  Receipt Date: 20200313
  Transmission Date: 20200409
  Serious: Yes (Other)
  Sender: FDA-Public Use
  Company Number: AU-GE HEALTHCARE LIFE SCIENCES-2020CSU001004

PATIENT

DRUGS (2)
  1. OMNIPAQUE [Suspect]
     Active Substance: IOHEXOL
     Indication: DIAGNOSTIC PROCEDURE
     Dosage: UNK, SINGLE
     Route: 065
  2. OMNIPAQUE [Suspect]
     Active Substance: IOHEXOL
     Indication: PRODUCT USED FOR UNKNOWN INDICATION

REACTIONS (14)
  - Fatigue [Unknown]
  - Pruritus [Unknown]
  - Sneezing [Unknown]
  - Headache [Unknown]
  - Dysgeusia [Unknown]
  - Thirst [Unknown]
  - Erythema [Unknown]
  - Tachycardia [Unknown]
  - Throat tightness [Unknown]
  - Dyspnoea [Unknown]
  - Nausea [Unknown]
  - Oxygen saturation decreased [Unknown]
  - Dizziness [Unknown]
  - Asthenia [Unknown]
